FAERS Safety Report 8956956 (Version 1)
Quarter: 2012Q4

REPORT INFORMATION
  Report Type: 
  Country: GB (occurrence: GB)
  Receive Date: 20121211
  Receipt Date: 20121211
  Transmission Date: 20130627
  Serious: Yes (Other)
  Sender: FDA-Public Use
  Company Number: GB-UCBSA-071746

PATIENT
  Age: 68 None
  Sex: Female

DRUGS (2)
  1. CIMZIA [Suspect]
     Indication: RHEUMATOID ARTHRITIS
     Dosage: 2 INJECTIONS IN EVERY TWO WEEKS
     Route: 058
     Dates: start: 20121011, end: 20121122
  2. CIMZIA [Suspect]
     Indication: RHEUMATOID ARTHRITIS
     Dosage: INDUCTION DOSE (DOSE UNKNOWN)
     Route: 058
     Dates: start: 201207, end: 2012

REACTIONS (4)
  - Inappropriate schedule of drug administration [Recovered/Resolved]
  - Lower respiratory tract infection [Unknown]
  - Depressed mood [Unknown]
  - Incorrect dose administered [Unknown]
